FAERS Safety Report 16701937 (Version 3)
Quarter: 2019Q3

REPORT INFORMATION
  Report Type: Spontaneous
  Country: NL (occurrence: NL)
  Receive Date: 20190814
  Receipt Date: 20190919
  Transmission Date: 20191004
  Serious: Yes (Life-Threatening, Hospitalization, Disabling)
  Sender: FDA-Public Use
  Company Number: NL-PFIZER INC-2019345056

PATIENT
  Age: 64 Year
  Sex: Male
  Weight: 72 kg

DRUGS (26)
  1. NATRIUMCHLORIDE [Concomitant]
     Active Substance: SODIUM CHLORIDE
     Dosage: UNK (STRENGTH: 9 MG/ML)
     Route: 048
  2. MACROGOL [Concomitant]
     Active Substance: POLYETHYLENE GLYCOLS
     Dosage: 1 DF, 3X/DAY
  3. ADRENALINE [EPINEPHRINE] [Concomitant]
     Active Substance: EPINEPHRINE
     Dosage: UNK
  4. PRIVIGEN [Concomitant]
     Active Substance: HUMAN IMMUNOGLOBULIN G
     Dosage: UNK
  5. MAGNESIUM HYDROXIDE. [Concomitant]
     Active Substance: MAGNESIUM HYDROXIDE
     Dosage: 2 DF, 3X/DAY
  6. MIRTAZAPINE SANDOZ [Concomitant]
     Active Substance: MIRTAZAPINE
  7. FLUCONAZOL AUROBINDO [Concomitant]
     Active Substance: FLUCONAZOLE
  8. ETORICOXIB. [Concomitant]
     Active Substance: ETORICOXIB
     Dosage: UNK
  9. AMOXICILLIN/CLAVULANIC ACID [Concomitant]
     Active Substance: AMOXICILLIN\CLAVULANIC ACID
     Dosage: 1 DF, 3X/DAY
     Route: 048
     Dates: start: 20190629, end: 20190706
  10. AMLODIPINE [Concomitant]
     Active Substance: AMLODIPINE BESYLATE
     Dosage: 10 MG, 1X/DAY
  11. OXYCODON [Concomitant]
     Active Substance: OXYCODONE
     Dosage: 10 MG, 2X/DAY
  12. FLUCONAZOLE. [Suspect]
     Active Substance: FLUCONAZOLE
     Indication: INFECTION PROPHYLAXIS
     Dosage: 150 MG, WEEKLY
     Route: 050
     Dates: start: 20181009
  13. TAMSULOSIN [Concomitant]
     Active Substance: TAMSULOSIN
     Dosage: 0.4 MG, 1X/DAY
  14. DULOXETINE. [Concomitant]
     Active Substance: DULOXETINE
     Dosage: 30 MG, 1X/DAY
  15. ALENDRONIC ACID AUROBINDO [Concomitant]
     Active Substance: ALENDRONIC ACID
     Dosage: 70 MG, WEEKLY
  16. OXYNORM [Concomitant]
     Active Substance: OXYCODONE HYDROCHLORIDE
     Dosage: 10 MG, AS NEEDED (6X/DAY)
  17. DERMOVATE [Concomitant]
     Active Substance: CLOBETASOL
     Dosage: 1 DF, 1X/DAY
  18. PREDNISOLON CF [Concomitant]
     Dosage: 5 MG, 2X/DAY
  19. FYTOMENADION [Concomitant]
     Dosage: UNK
  20. TRAMADOL. [Concomitant]
     Active Substance: TRAMADOL
     Dosage: 50 MG, AS NEEDED (6X/DAY)
  21. ZOPICLON [Concomitant]
     Active Substance: ZOPICLONE
     Dosage: 7 MG, 1X/DAY
  22. MIRTAZAPINE. [Interacting]
     Active Substance: MIRTAZAPINE
     Indication: SLEEP DISORDER
     Dosage: 7.5 MG, UNK
     Route: 050
     Dates: start: 20190611, end: 20190625
  23. MIRTAZAPINE. [Interacting]
     Active Substance: MIRTAZAPINE
     Indication: AFFECTIVE DISORDER
     Dosage: 15 MG, UNK
     Route: 050
     Dates: start: 20190626, end: 20190629
  24. BUDESONIDE. [Concomitant]
     Active Substance: BUDESONIDE
     Dosage: UNK
  25. RANITIDINE. [Concomitant]
     Active Substance: RANITIDINE
     Dosage: 300 MG, 2X/DAY
  26. CALCIUM CARBONATE W/VITAMIN D [CALCIUM CARBONATE;COLECALCIFEROL] [Concomitant]
     Active Substance: CALCIUM CARBONATE\CHOLECALCIFEROL
     Dosage: 1 DF, 1X/DAY

REACTIONS (5)
  - Body temperature decreased [Recovering/Resolving]
  - Hyperhidrosis [Recovering/Resolving]
  - Chills [Recovering/Resolving]
  - Drug interaction [Recovering/Resolving]
  - Somnolence [Recovering/Resolving]

NARRATIVE: CASE EVENT DATE: 20190629
